FAERS Safety Report 7024857-3 (Version None)
Quarter: 2010Q4

REPORT INFORMATION
  Report Type: 
  Country: None (occurrence: None)
  Receive Date: 20101001
  Receipt Date: 20100923
  Transmission Date: 20110411
  Serious: Yes (Hospitalization)
  Sender: FDA-Public Use
  Company Number: US-AMGEN-QUU434969

PATIENT
  Sex: Female

DRUGS (7)
  1. ENBREL [Suspect]
     Indication: PSORIATIC ARTHROPATHY
     Route: 058
     Dates: start: 20040101
  2. ENBREL [Suspect]
     Indication: PSORIASIS
  3. METHOTREXATE [Concomitant]
     Route: 048
     Dates: start: 19940101
  4. TOPROL-XL [Concomitant]
     Route: 048
  5. LISINOPRIL [Concomitant]
     Route: 048
  6. OXYBUTYNIN [Concomitant]
  7. ZOLOFT [Concomitant]
     Route: 048

REACTIONS (4)
  - ARTHRALGIA [None]
  - ARTHRITIS [None]
  - HYPERTONIC BLADDER [None]
  - PSORIASIS [None]
